FAERS Safety Report 14485640 (Version 1)
Quarter: 2018Q1

REPORT INFORMATION
  Report Type: Spontaneous
  Country: US (occurrence: US)
  Receive Date: 20180203
  Receipt Date: 20180203
  Transmission Date: 20180509
  Serious: Yes (Disabling)
  Sender: FDA-Public Use
  Company Number: None

PATIENT
  Age: 21 Year
  Sex: Female
  Weight: 53.55 kg

DRUGS (1)
  1. CIPROFLOXACIN. [Suspect]
     Active Substance: CIPROFLOXACIN
     Indication: URINARY TRACT INFECTION

REACTIONS (11)
  - Vision blurred [None]
  - Muscular weakness [None]
  - Photophobia [None]
  - Sensory disturbance [None]
  - Arthralgia [None]
  - Myalgia [None]
  - Anxiety [None]
  - Flank pain [None]
  - Quality of life decreased [None]
  - Neuropathy peripheral [None]
  - Insomnia [None]

NARRATIVE: CASE EVENT DATE: 20171115
